FAERS Safety Report 25233765 (Version 1)
Quarter: 2025Q2

REPORT INFORMATION
  Report Type: Spontaneous
  Country: DE (occurrence: DE)
  Receive Date: 20250424
  Receipt Date: 20250424
  Transmission Date: 20250716
  Serious: Yes (Other)
  Sender: TEVA
  Company Number: DE-EMB-M202306317-1

PATIENT
  Sex: Female
  Weight: 80 kg

DRUGS (7)
  1. QUETIAPINE [Suspect]
     Active Substance: QUETIAPINE
     Indication: Borderline personality disorder
     Dosage: ENTIRE PREGNANCY
     Route: 048
     Dates: start: 202306, end: 202404
  2. SERTRALINE [Concomitant]
     Active Substance: SERTRALINE HYDROCHLORIDE
     Indication: Borderline personality disorder
     Dosage: ENTIRE PREGNANCY
     Route: 048
     Dates: start: 202306, end: 202404
  3. MIRTAZAPINE [Concomitant]
     Active Substance: MIRTAZAPINE
     Indication: Sleep disorder
     Dosage: ENTIRE PREGNANCY
     Route: 048
     Dates: start: 202306, end: 202404
  4. LITHIUM [Concomitant]
     Active Substance: LITHIUM
     Indication: Borderline personality disorder
     Route: 048
     Dates: start: 202306, end: 202404
  5. BUPROPION [Concomitant]
     Active Substance: BUPROPION
     Indication: Borderline personality disorder
     Dosage: ENTIRE PREGNANCY
     Route: 048
     Dates: start: 202306, end: 202404
  6. LEVOTHYROXINE SODIUM [Concomitant]
     Active Substance: LEVOTHYROXINE SODIUM
     Indication: Hypothyroidism
     Route: 048
     Dates: start: 202306, end: 202404
  7. FOLIC ACID [Concomitant]
     Active Substance: FOLIC ACID
     Indication: Prophylaxis of neural tube defect
     Route: 048
     Dates: start: 202306, end: 202307

REACTIONS (2)
  - Gestational diabetes [Recovered/Resolved]
  - Exposure during pregnancy [Unknown]
